FAERS Safety Report 8479742 (Version 4)
Quarter: 2013Q4

REPORT INFORMATION
  Report Type: Spontaneous
  Country: GB (occurrence: GB)
  Receive Date: 20120328
  Receipt Date: 20131031
  Transmission Date: 20140711
  Serious: Yes (Other)
  Sender: FDA-Public Use
  Company Number: PHFR2012GB001679

PATIENT
  Age: 21 Year
  Sex: Female

DRUGS (8)
  1. CLOZARIL [Suspect]
     Indication: SCHIZOPHRENIA
     Dosage: 300 MG, DAILY
     Route: 048
     Dates: start: 20100811
  2. CLOZARIL [Suspect]
     Dosage: UNK (DOSE REDUCED)
     Route: 048
  3. CLOZARIL [Suspect]
     Dosage: UNK (DOSE INCREASED)
     Route: 048
  4. CLOZARIL [Suspect]
     Dosage: 300 MG, OD
     Route: 048
  5. PANTOPRAZOLE [Concomitant]
     Dosage: UNK
     Route: 048
  6. LAMOTRIGINE [Concomitant]
     Dosage: 125 MG, DAILY
     Route: 048
  7. VENLAFAXINE [Concomitant]
     Dosage: 225 MG, UNK
     Route: 048
  8. SERTRALINE [Concomitant]
     Dosage: UNK

REACTIONS (8)
  - Mental disorder [Unknown]
  - Asthma [Unknown]
  - Bundle branch block right [Unknown]
  - Electrocardiogram QRS complex prolonged [Unknown]
  - Electrocardiogram repolarisation abnormality [Recovered/Resolved]
  - Tachycardia [Not Recovered/Not Resolved]
  - Somnolence [Recovered/Resolved]
  - Antipsychotic drug level increased [Unknown]
